FAERS Safety Report 14849465 (Version 3)
Quarter: 2019Q4

REPORT INFORMATION
  Report Type: Report from Study
  Country: FR (occurrence: CR)
  Receive Date: 20180504
  Receipt Date: 20191010
  Transmission Date: 20200122
  Serious: Yes (Death)
  Sender: FDA-Public Use
  Company Number: FR-PFIZER INC-2018178153

PATIENT

DRUGS (2)
  1. GEMTUZUMAB OZOGAMICIN [Suspect]
     Active Substance: GEMTUZUMAB OZOGAMICIN
     Indication: ACUTE MYELOID LEUKAEMIA
     Dosage: 3 MG/M2, CYCLIC (MAXIMUM DOSE 5 MG) ON DAYS 1, 4, AND 7 WITH DIFFERENT CHEMOTHERAPIES
  2. CYTARABINE. [Suspect]
     Active Substance: CYTARABINE
     Indication: ACUTE MYELOID LEUKAEMIA
     Dosage: UNK 1G/M? TWICE DAILY IN DAY 1-5

REACTIONS (1)
  - Haemorrhage [Fatal]
